FAERS Safety Report 6907736-9 (Version None)
Quarter: 2010Q3

REPORT INFORMATION
  Report Type: 
  Country: None (occurrence: None)
  Receive Date: 20100709
  Receipt Date: 20100223
  Transmission Date: 20110219
  Serious: Yes (Life-Threatening, Hospitalization)
  Sender: FDA-Public Use
  Company Number: 2010020103

PATIENT
  Age: 62 Year
  Sex: Female

DRUGS (14)
  1. SOMA [Suspect]
     Indication: NECK PAIN
     Dosage: 1000 MG (250 MG, 1 IN 6 HR), ORAL
     Route: 048
     Dates: start: 20091201, end: 20100220
  2. TOPIRAMATE [Concomitant]
  3. FLEXERIL [Concomitant]
  4. LANTUS [Concomitant]
  5. JANUMET (SITAGLIPTIN, METFORMIN) [Concomitant]
  6. AVANDIA [Concomitant]
  7. CELEBREX [Concomitant]
  8. AMBIEN [Concomitant]
  9. VOLTAREN [Concomitant]
  10. IRON (IRON) [Concomitant]
  11. ASPIRIN [Concomitant]
  12. COLACE (DOCUSATE) [Concomitant]
  13. BUSPIRONE HCL [Concomitant]
  14. LORTAB [Concomitant]

REACTIONS (1)
  - CONVULSION [None]
